FAERS Safety Report 18408898 (Version 2)
Quarter: 2021Q4

REPORT INFORMATION
  Report Type: Report from Study
  Country: US (occurrence: US)
  Receive Date: 20201021
  Receipt Date: 20211129
  Transmission Date: 20220303
  Serious: Yes (Other)
  Sender: FDA-Public Use
  Company Number: US-INSMED, INC.-US-INS-20-01431

PATIENT
  Sex: Female

DRUGS (1)
  1. ARIKAYCE [Suspect]
     Active Substance: AMIKACIN
     Indication: Chronic obstructive pulmonary disease
     Dosage: 590 MILLIGRAM, ONCE DAILY
     Route: 055
     Dates: start: 201902, end: 2021

REACTIONS (10)
  - Renal failure [Unknown]
  - Non-Hodgkin^s lymphoma [Unknown]
  - COVID-19 [Unknown]
  - Dyspnoea [Unknown]
  - Product dose omission issue [Unknown]
  - Insurance issue [Unknown]
  - Device connection issue [Unknown]
  - Accidental underdose [Unknown]
  - Therapy interrupted [Unknown]
  - Off label use [Unknown]

NARRATIVE: CASE EVENT DATE: 20210101
